FAERS Safety Report 8555164-5 (Version None)
Quarter: 2012Q3

REPORT INFORMATION
  Report Type: 
  Country: None (occurrence: None)
  Receive Date: 20120731
  Receipt Date: 20120717
  Transmission Date: 20120928
  Serious: No
  Sender: FDA-Public Use
  Company Number: US-ASTRAZENECA-2012SE50389

PATIENT
  Age: 46 Year
  Sex: Female

DRUGS (4)
  1. NEXIUM [Suspect]
     Route: 048
  2. NAPROXEN [Concomitant]
  3. NEURONTIN [Concomitant]
  4. VICODIN [Concomitant]

REACTIONS (3)
  - CHEST PAIN [None]
  - EAR DISCOMFORT [None]
  - THROAT IRRITATION [None]
